FAERS Safety Report 4985723-8 (Version None)
Quarter: 2006Q2

REPORT INFORMATION
  Report Type: 
  Country: None (occurrence: None)
  Receive Date: 20060428
  Receipt Date: 20050727
  Transmission Date: 20061013
  Serious: No
  Sender: FDA-Public Use
  Company Number: US-GLAXOSMITHKLINE-A0568362A

PATIENT
  Age: 29 Year
  Sex: Female

DRUGS (1)
  1. ZOFRAN [Suspect]
     Indication: NAUSEA
     Route: 048
     Dates: start: 20050523, end: 20050523

REACTIONS (2)
  - DRUG EXPOSURE DURING PREGNANCY [None]
  - DRUG INEFFECTIVE [None]
